FAERS Safety Report 6197490-3 (Version None)
Quarter: 2009Q2

REPORT INFORMATION
  Report Type: 
  Country: None (occurrence: None)
  Receive Date: 20090521
  Receipt Date: 20090512
  Transmission Date: 20091009
  Serious: Yes (Other)
  Sender: FDA-Public Use
  Company Number: CN-ASTRAZENECA-2009AP02952

PATIENT
  Age: 56 Year
  Sex: Female

DRUGS (1)
  1. LIDOCAINE [Suspect]

REACTIONS (4)
  - CARDIAC ARREST [None]
  - CONFUSIONAL STATE [None]
  - RESPIRATORY ARREST [None]
  - SUPRAVENTRICULAR TACHYCARDIA [None]
